FAERS Safety Report 24770225 (Version 3)
Quarter: 2025Q3

REPORT INFORMATION
  Report Type: Report from Study
  Country: EU (occurrence: EU)
  Receive Date: 20241224
  Receipt Date: 20250809
  Transmission Date: 20251020
  Serious: Yes (Other)
  Sender: ALEXION PHARMACEUTICALS
  Company Number: EU-ALXN-202411GLO009818NL

PATIENT
  Age: 33 Year
  Sex: Female
  Weight: 110 kg

DRUGS (9)
  1. SOLIRIS [Suspect]
     Active Substance: ECULIZUMAB
     Indication: Paroxysmal nocturnal haemoglobinuria
  2. SOLIRIS [Suspect]
     Active Substance: ECULIZUMAB
  3. LEVOTHYROXINE [Concomitant]
     Active Substance: LEVOTHYROXINE
  4. VITAMINS [Concomitant]
     Active Substance: VITAMINS
  5. FOLIC ACID [Concomitant]
     Active Substance: FOLIC ACID
  6. AMOXICILLIN [Concomitant]
     Active Substance: AMOXICILLIN
  7. CLEMASTINE [Concomitant]
     Active Substance: CLEMASTINE
  8. DALTEPARIN [Concomitant]
     Active Substance: DALTEPARIN
  9. NADROPARIN [Concomitant]
     Active Substance: NADROPARIN

REACTIONS (2)
  - Postpartum haemorrhage [Recovered/Resolved]
  - Exposure during pregnancy [Recovered/Resolved]

NARRATIVE: CASE EVENT DATE: 20191224
